FAERS Safety Report 6210795 (Version 3)
Quarter: 2013Q1

REPORT INFORMATION
  Report Type: Spontaneous
  Country: SE (occurrence: SE)
  Receive Date: 20070109
  Receipt Date: 20130304
  Transmission Date: 20140127
  Serious: Yes (Life-Threatening, Hospitalization, Other)
  Sender: FDA-Public Use
  Company Number: SE-JNJFOC-20061202465

PATIENT
  Age: 70 Year
  Sex: Female

DRUGS (8)
  1. REMICADE [Suspect]
     Indication: RHEUMATOID ARTHRITIS
     Route: 042
     Dates: start: 20011029, end: 20040226
  2. TAGAMET [Concomitant]
     Route: 065
  3. METHOTREXATE [Concomitant]
     Route: 065
  4. FOLACIN [Concomitant]
     Route: 065
  5. LEVAXIN [Concomitant]
     Route: 065
  6. PREDNISOLON [Concomitant]
     Route: 065
  7. FLUNITRAZEPAM [Concomitant]
     Route: 065
  8. LITHIONIT [Concomitant]
     Route: 065

REACTIONS (1)
  - Malignant respiratory tract neoplasm [Not Recovered/Not Resolved]
